FAERS Safety Report 18459015 (Version 1)
Quarter: 2020Q4

REPORT INFORMATION
  Report Type: Spontaneous
  Country: US (occurrence: US)
  Receive Date: 20201103
  Receipt Date: 20201103
  Transmission Date: 20210114
  Serious: No
  Sender: FDA-Public Use
  Company Number: US-BEH-2020124151

PATIENT
  Sex: Female

DRUGS (1)
  1. HIZENTRA [Suspect]
     Active Substance: HUMAN IMMUNOGLOBULIN G
     Indication: IMMUNODEFICIENCY
     Dosage: 10 GRAM, EVERY 7 TO 10 DAYS
     Route: 058
     Dates: start: 20161115

REACTIONS (3)
  - Decreased appetite [Unknown]
  - Depression [Unknown]
  - Weight decreased [Unknown]
